FAERS Safety Report 5006755-X (Version None)
Quarter: 2006Q2

REPORT INFORMATION
  Report Type: 
  Country: None (occurrence: None)
  Receive Date: 20060516
  Receipt Date: 20060503
  Transmission Date: 20061013
  Serious: Yes (Hospitalization, Other)
  Sender: FDA-Public Use
  Company Number: 2006059680

PATIENT
  Sex: Female

DRUGS (5)
  1. VFEND [Suspect]
     Indication: ASPERGILLOSIS
     Dosage: 400 MG
     Dates: start: 20040901
  2. SYMBICORT (BUDESONIDE, FORMOTEROL FUMARATE) [Suspect]
     Indication: ILL-DEFINED DISORDER
  3. DRUG, UNSPECIFIED [Concomitant]
  4. AZITHROMYCIN [Concomitant]
  5. PREDNISOLONE [Concomitant]

REACTIONS (13)
  - BLISTER [None]
  - CATARACT [None]
  - CHOLELITHIASIS [None]
  - CHRONIC OBSTRUCTIVE PULMONARY DISEASE [None]
  - DRUG INTERACTION [None]
  - FOOD INTERACTION [None]
  - HEPATIC FUNCTION ABNORMAL [None]
  - HIP FRACTURE [None]
  - INFECTION [None]
  - OEDEMA PERIPHERAL [None]
  - OSTEOPOROSIS [None]
  - SKIN DISORDER [None]
  - TUBERCULOSIS [None]
